FAERS Safety Report 7883515-3 (Version None)
Quarter: 2011Q4

REPORT INFORMATION
  Report Type: 
  Country: None (occurrence: None)
  Receive Date: 20111102
  Receipt Date: 20111024
  Transmission Date: 20120403
  Serious: Yes (Other)
  Sender: FDA-Public Use
  Company Number: FR-ASTELLAS-2011EU006159

PATIENT
  Sex: Male

DRUGS (8)
  1. ASPEGIC 325 [Concomitant]
     Dosage: UNK
     Route: 065
  2. PROGRAF [Suspect]
     Indication: HEART TRANSPLANT
     Dosage: 4 MG, BID
     Route: 048
     Dates: start: 20110325
  3. LEVOTHYROXINE SODIUM [Concomitant]
     Dosage: UNK
     Route: 065
  4. PREDNISOLONE [Concomitant]
     Indication: PROPHYLAXIS AGAINST TRANSPLANT REJECTION
     Dosage: 17.5 MG, UNKNOWN/D
     Route: 048
     Dates: start: 20101213
  5. COZAAR [Concomitant]
     Indication: HYPERTENSION
     Dosage: 50 MG, UNKNOWN/D
     Route: 048
  6. PROGRAF [Suspect]
     Dosage: 2 MG, BID
     Route: 048
  7. MYCOPHENOLATE MOFETIL (CELLCEPT) [Concomitant]
     Indication: PROPHYLAXIS AGAINST TRANSPLANT REJECTION
     Dosage: 500 MG, BID
     Route: 048
     Dates: start: 20101213
  8. VALGANCICLOVIR [Concomitant]
     Dosage: UNK
     Route: 065

REACTIONS (4)
  - HEAD INJURY [None]
  - PARTIAL SEIZURES [None]
  - LOSS OF CONSCIOUSNESS [None]
  - MALAISE [None]
